FAERS Safety Report 16168456 (Version 2)
Quarter: 2019Q2

REPORT INFORMATION
  Report Type: Spontaneous
  Country: US (occurrence: US)
  Receive Date: 20190408
  Receipt Date: 20190530
  Transmission Date: 20190711
  Serious: No
  Sender: FDA-Public Use
  Company Number: US-PFIZER INC-2019137803

PATIENT
  Age: 7 Decade
  Sex: Male

DRUGS (2)
  1. ALAVERT ALLERGY [Suspect]
     Active Substance: LORATADINE
     Dosage: UNK, DAILY (1-3 PER DAY )
     Dates: end: 2019
  2. ALAVERT ALLERGY [Suspect]
     Active Substance: LORATADINE
     Indication: HYPERSENSITIVITY
     Dosage: 3 OR 4 DF, DAILY

REACTIONS (2)
  - Drug ineffective [Unknown]
  - Intentional product use issue [Unknown]
